FAERS Safety Report 8073896-2 (Version None)
Quarter: 2011Q4

REPORT INFORMATION
  Report Type: 
  Country: None (occurrence: None)
  Receive Date: 20111221
  Receipt Date: 20110511
  Transmission Date: 20120403
  Serious: Yes (Other)
  Sender: FDA-Public Use
  Company Number: PHHY2010US18549

PATIENT
  Age: 8 Year
  Sex: Male
  Weight: 31.2 kg

DRUGS (1)
  1. EXJADE [Suspect]
     Indication: SICKLE CELL ANAEMIA
     Dosage: 625 MG, QD, ORAL, 2AND 1/2 TABLETS DAILY, ORAL, 2 TABLETS DAILY, ORAL
     Route: 048

REACTIONS (4)
  - LIVER DISORDER [None]
  - BLOOD BILIRUBIN INCREASED [None]
  - ALANINE AMINOTRANSFERASE INCREASED [None]
  - HEPATIC ENZYME INCREASED [None]
